FAERS Safety Report 6276284-4 (Version None)
Quarter: 2009Q3

REPORT INFORMATION
  Report Type: 
  Country: None (occurrence: None)
  Receive Date: 20090720
  Receipt Date: 20090513
  Transmission Date: 20100115
  Serious: Yes (Hospitalization)
  Sender: FDA-Public Use
  Company Number: JPI-P-007911

PATIENT
  Age: 23 Year
  Sex: Male

DRUGS (2)
  1. XYREM [Suspect]
     Indication: DRUG USE FOR UNKNOWN INDICATION
     Dosage: 0.6 MG/KG (0.3 MG/KG, 2 IN 1 D), ORAL
     Route: 048
  2. BACLOFEN [Suspect]
     Indication: DRUG USE FOR UNKNOWN INDICATION
     Dosage: 0.05 MG/KG (0.35 MG/KG, TWICE)
     Dates: start: 20080815, end: 20080915

REACTIONS (3)
  - RETINAL DEGENERATION [None]
  - RETINAL DEPOSITS [None]
  - VISUAL FIELD DEFECT [None]
